FAERS Safety Report 9289062 (Version 4)
Quarter: 2014Q3

REPORT INFORMATION
  Report Type: Spontaneous
  Country: US (occurrence: US)
  Receive Date: 20130514
  Receipt Date: 20140930
  Transmission Date: 20150326
  Serious: No
  Sender: FDA-Public Use
  Company Number: US-009507513-1305USA008417

PATIENT
  Sex: Male
  Weight: 88.89 kg

DRUGS (2)
  1. PROPECIA [Suspect]
     Active Substance: FINASTERIDE
     Indication: ANDROGENETIC ALOPECIA
     Dosage: 1 MG, QD
     Route: 048
     Dates: start: 19980105, end: 20130211
  2. FINASTERIDE. [Suspect]
     Active Substance: FINASTERIDE
     Dosage: 1 MG, UNK
     Route: 048
     Dates: start: 20130206, end: 20130402

REACTIONS (17)
  - Rib fracture [Unknown]
  - Adenotonsillectomy [Unknown]
  - Fatigue [Unknown]
  - Pneumonia [Unknown]
  - Adverse drug reaction [Recovering/Resolving]
  - Splenic rupture [Unknown]
  - Depression [Not Recovered/Not Resolved]
  - Cervical vertebral fracture [Unknown]
  - Skin papilloma [Unknown]
  - Libido decreased [Unknown]
  - Concussion [Unknown]
  - Sexual dysfunction [Not Recovered/Not Resolved]
  - Hyperlipidaemia [Unknown]
  - Varicella [Unknown]
  - Anxiety [Not Recovered/Not Resolved]
  - Road traffic accident [Unknown]
  - Erectile dysfunction [Not Recovered/Not Resolved]

NARRATIVE: CASE EVENT DATE: 199806
